FAERS Safety Report 10186274 (Version 1)
Quarter: 2014Q2

REPORT INFORMATION
  Report Type: Spontaneous
  Country: US (occurrence: US)
  Receive Date: 20140521
  Receipt Date: 20140521
  Transmission Date: 20141212
  Serious: Yes (Other)
  Sender: FDA-Public Use
  Company Number: US-MERCK-1405USA010523

PATIENT
  Sex: Male

DRUGS (3)
  1. JANUVIA [Suspect]
     Dosage: UNK
     Route: 048
     Dates: start: 20090311, end: 20090603
  2. BYETTA [Suspect]
     Dosage: UNK
  3. VICTOZA [Suspect]
     Dosage: UNK
     Dates: start: 20130313, end: 20140209

REACTIONS (1)
  - Pancreatic carcinoma [Unknown]
